FAERS Safety Report 16823015 (Version 1)
Quarter: 2019Q3

REPORT INFORMATION
  Report Type: Spontaneous
  Country: IT (occurrence: IT)
  Receive Date: 20190918
  Receipt Date: 20190918
  Transmission Date: 20191005
  Serious: Yes (Other)
  Sender: FDA-Public Use
  Company Number: IT-MYLANLABS-2019M1087103

PATIENT
  Age: 54 Year
  Sex: Male

DRUGS (6)
  1. EPIRUBICIN [Suspect]
     Active Substance: EPIRUBICIN
     Indication: HEPATOCELLULAR CARCINOMA
     Dosage: TWO ROUNDS OF DRUG-ELUTING BEADS (DEB)-TRANSARTERIAL CHEMOEMBOLISATION (TACE) WITH EPIRUBICIN 50M...
     Route: 065
     Dates: start: 2017
  2. EPIRUBICIN [Suspect]
     Active Substance: EPIRUBICIN
     Indication: TUMOUR THROMBOSIS
  3. SORAFENIB [Suspect]
     Active Substance: SORAFENIB
     Indication: TUMOUR THROMBOSIS
  4. ETHYL ALCOHOL [Suspect]
     Active Substance: ALCOHOL
     Indication: HEPATOCELLULAR CARCINOMA
     Route: 050
     Dates: start: 201705
  5. ETHYL ALCOHOL [Suspect]
     Active Substance: ALCOHOL
     Indication: TUMOUR THROMBOSIS
  6. SORAFENIB [Suspect]
     Active Substance: SORAFENIB
     Indication: HEPATOCELLULAR CARCINOMA
     Dosage: FOR 2 MONTHS
     Route: 065
     Dates: end: 2017

REACTIONS (1)
  - Drug ineffective [Unknown]
